FAERS Safety Report 16192796 (Version 1)
Quarter: 2019Q2

REPORT INFORMATION
  Report Type: Spontaneous
  Country: US (occurrence: US)
  Receive Date: 20190412
  Receipt Date: 20190412
  Transmission Date: 20190711
  Serious: Yes (Other)
  Sender: FDA-Public Use
  Company Number: US-BAXTER-2019BAX007121

PATIENT
  Age: 30 Year
  Sex: Male

DRUGS (1)
  1. LACTATED RINGERS SOLUTION [Suspect]
     Active Substance: CALCIUM CHLORIDE\POTASSIUM CHLORIDE\SODIUM CHLORIDE\SODIUM LACTATE
     Indication: HIP ARTHROPLASTY
     Dosage: 75ML PER HOUR?LACTATED RINGERS 1000 ML
     Route: 042
     Dates: start: 20190327, end: 20190327

REACTIONS (2)
  - Soft tissue infection [Recovering/Resolving]
  - Pseudomonas infection [Unknown]

NARRATIVE: CASE EVENT DATE: 201903
